FAERS Safety Report 7536173-1 (Version None)
Quarter: 2011Q2

REPORT INFORMATION
  Report Type: 
  Country: None (occurrence: None)
  Receive Date: 20110602
  Receipt Date: 20110517
  Transmission Date: 20111010
  Serious: Yes (Other)
  Sender: FDA-Public Use
  Company Number: FK201101061

PATIENT
  Age: 75 Year
  Sex: Male

DRUGS (1)
  1. GEMCITABINE [Suspect]
     Indication: BLADDER CANCER
     Dosage: 1500 MG
     Dates: start: 20061201

REACTIONS (1)
  - PNEUMONIA CRYPTOCOCCAL [None]
